FAERS Safety Report 24902088 (Version 1)
Quarter: 2025Q1

REPORT INFORMATION
  Report Type: Spontaneous
  Country: KR (occurrence: KR)
  Receive Date: 20250129
  Receipt Date: 20250129
  Transmission Date: 20250409
  Serious: Yes (Other)
  Sender: COLLEGIUM PHARMACEUTICAL
  Company Number: KR-JNJFOC-20250122751

PATIENT
  Sex: Female
  Weight: 50 kg

DRUGS (1)
  1. NUCYNTA [Suspect]
     Active Substance: TAPENTADOL HYDROCHLORIDE
     Indication: Benign bone neoplasm
     Route: 048
     Dates: start: 20210715, end: 20210803

REACTIONS (1)
  - Ileus [Recovered/Resolved]

NARRATIVE: CASE EVENT DATE: 20210804
